FAERS Safety Report 14425380 (Version 1)
Quarter: 2018Q1

REPORT INFORMATION
  Report Type: Spontaneous
  Country: US (occurrence: US)
  Receive Date: 20180123
  Receipt Date: 20180123
  Transmission Date: 20180509
  Serious: No
  Sender: FDA-Public Use
  Company Number: US-PERRIGO-17US002680

PATIENT
  Age: 15 Year
  Sex: Male
  Weight: 54.42 kg

DRUGS (1)
  1. IBUPROFEN. [Suspect]
     Active Substance: IBUPROFEN
     Indication: PYREXIA
     Dosage: 300 ML QD PRN
     Route: 048
     Dates: start: 20170320, end: 20170322

REACTIONS (1)
  - Drug administered to patient of inappropriate age [Recovered/Resolved]

NARRATIVE: CASE EVENT DATE: 20170320
